FAERS Safety Report 16211782 (Version 1)
Quarter: 2019Q2

REPORT INFORMATION
  Report Type: Spontaneous
  Country: US (occurrence: US)
  Receive Date: 20190417
  Receipt Date: 20190417
  Transmission Date: 20190711
  Serious: Yes (Hospitalization)
  Sender: FDA-Public Use
  Company Number: None

PATIENT
  Age: 66 Year
  Sex: Female

DRUGS (11)
  1. SENSIPAR [Suspect]
     Active Substance: CINACALCET HYDROCHLORIDE
  2. DOCUSATE SODIUM. [Concomitant]
     Active Substance: DOCUSATE SODIUM
     Dates: start: 20180622
  3. AMLODIPINE [Concomitant]
     Active Substance: AMLODIPINE BESYLATE
     Dates: start: 20181214
  4. CLOPIDOGREL [Concomitant]
     Active Substance: CLOPIDOGREL BISULFATE
     Dates: start: 20180622
  5. LEVOTHYROXINE. [Concomitant]
     Active Substance: LEVOTHYROXINE
     Dates: start: 20180622
  6. MYCOPHENOLIC [Concomitant]
     Active Substance: MYCOPHENOLIC ACID
     Dates: start: 20180326
  7. TACROLIMUS. [Concomitant]
     Active Substance: TACROLIMUS
     Dates: start: 20190123
  8. FUROSEMIDE. [Concomitant]
     Active Substance: FUROSEMIDE
     Dates: start: 20181214
  9. NIACIN. [Concomitant]
     Active Substance: NIACIN
     Dates: start: 20180622
  10. METOPROLOL. [Concomitant]
     Active Substance: METOPROLOL
     Dates: start: 20181214
  11. ASPIRIN. [Concomitant]
     Active Substance: ASPIRIN
     Dates: start: 20180622

REACTIONS (2)
  - Therapy cessation [None]
  - Renal transplant [None]

NARRATIVE: CASE EVENT DATE: 20180615
